FAERS Safety Report 21407541 (Version 2)
Quarter: 2022Q4

REPORT INFORMATION
  Report Type: Report from Study
  Country: US (occurrence: US)
  Receive Date: 20221004
  Receipt Date: 20221108
  Transmission Date: 20230113
  Serious: Yes (Death, Hospitalization)
  Sender: FDA-Public Use
  Company Number: US-NOVARTISPH-NVSC2022US223506

PATIENT
  Age: 65 Year
  Sex: Male
  Weight: 76.2 kg

DRUGS (1)
  1. ENTRESTO [Suspect]
     Active Substance: SACUBITRIL\VALSARTAN
     Indication: Congestive cardiomyopathy
     Dosage: 1 DOSAGE FORM, BID
     Route: 048
     Dates: start: 20180309, end: 20220824

REACTIONS (5)
  - Acute kidney injury [Fatal]
  - Myocardial ischaemia [Fatal]
  - Respiratory arrest [Fatal]
  - Asthenia [Unknown]
  - Product use in unapproved indication [Unknown]

NARRATIVE: CASE EVENT DATE: 20220824
